FAERS Safety Report 15744499 (Version 6)
Quarter: 2019Q2

REPORT INFORMATION
  Report Type: Spontaneous
  Country: DE (occurrence: DE)
  Receive Date: 20181220
  Receipt Date: 20190523
  Transmission Date: 20190711
  Serious: Yes (Other)
  Sender: FDA-Public Use
  Company Number: DE-BEH-2018097764

PATIENT
  Age: 61 Year
  Sex: Male
  Weight: 100 kg

DRUGS (16)
  1. HIZENTRA [Suspect]
     Active Substance: HUMAN IMMUNOGLOBULIN G
     Dosage: 100 G, QMT
     Route: 065
     Dates: start: 20181126, end: 20190207
  2. GAMUNEX [Suspect]
     Active Substance: HUMAN IMMUNOGLOBULIN G
     Dosage: 1000 ML, 3 DAYS 400/400/200
     Route: 042
  3. HIZENTRA [Suspect]
     Active Substance: HUMAN IMMUNOGLOBULIN G
     Dosage: 50 ML, SINGLE
     Route: 058
     Dates: start: 20181212, end: 20181212
  4. HIZENTRA [Suspect]
     Active Substance: HUMAN IMMUNOGLOBULIN G
     Dosage: 10 G, TOT
     Route: 065
     Dates: start: 20190205, end: 20190205
  5. GAMUNEX [Suspect]
     Active Substance: HUMAN IMMUNOGLOBULIN G
     Dosage: 1000 ML, TOT, 400/400/200 FOR 3 DAYS
     Route: 042
     Dates: start: 20190107, end: 20190109
  6. HIZENTRA [Suspect]
     Active Substance: HUMAN IMMUNOGLOBULIN G
     Dosage: 10 G, TOT
     Route: 065
     Dates: start: 20190201, end: 20190201
  7. GAMUNEX [Suspect]
     Active Substance: HUMAN IMMUNOGLOBULIN G
     Indication: CHRONIC INFLAMMATORY DEMYELINATING POLYRADICULONEUROPATHY
     Dosage: UNK UNK, Q3W
     Route: 042
     Dates: start: 2015, end: 20181128
  8. HIZENTRA [Suspect]
     Active Substance: HUMAN IMMUNOGLOBULIN G
     Dosage: 40 ML, SINGLE
     Route: 058
     Dates: start: 20181206, end: 20181206
  9. HIZENTRA [Suspect]
     Active Substance: HUMAN IMMUNOGLOBULIN G
     Dosage: 50 ML, SINGLE
     Route: 058
     Dates: start: 20181223, end: 20181223
  10. HIZENTRA [Suspect]
     Active Substance: HUMAN IMMUNOGLOBULIN G
     Dosage: 10 G, TOT
     Route: 065
     Dates: start: 20190207, end: 20190207
  11. GAMUNEX [Suspect]
     Active Substance: HUMAN IMMUNOGLOBULIN G
     Dosage: 1000 ML, TOT, 400/400/200 FOR 3 DAYS
     Route: 042
     Dates: start: 20181126, end: 20181128
  12. HIZENTRA [Suspect]
     Active Substance: HUMAN IMMUNOGLOBULIN G
     Indication: CHRONIC INFLAMMATORY DEMYELINATING POLYRADICULONEUROPATHY
     Dosage: 20 ML, SINGLE
     Route: 058
     Dates: start: 20181126, end: 20181126
  13. HIZENTRA [Suspect]
     Active Substance: HUMAN IMMUNOGLOBULIN G
     Dosage: 40 ML, SINGLE
     Route: 058
     Dates: start: 20181203, end: 20181203
  14. HIZENTRA [Suspect]
     Active Substance: HUMAN IMMUNOGLOBULIN G
     Dosage: 50 ML, SINGLE
     Route: 058
     Dates: start: 20181210, end: 20181210
  15. HIZENTRA [Suspect]
     Active Substance: HUMAN IMMUNOGLOBULIN G
     Dosage: UNK, Q3D
     Route: 058
  16. HIZENTRA [Suspect]
     Active Substance: HUMAN IMMUNOGLOBULIN G
     Dosage: 10 G, TOT
     Route: 065
     Dates: start: 20190203, end: 20190203

REACTIONS (20)
  - Paraesthesia [Recovered/Resolved]
  - Hypoaesthesia [Recovering/Resolving]
  - Palpitations [Recovered/Resolved]
  - Adverse drug reaction [Recovering/Resolving]
  - Paraesthesia [Unknown]
  - Discomfort [Unknown]
  - Paraesthesia [Recovering/Resolving]
  - Hypoaesthesia [Recovering/Resolving]
  - Paraesthesia [Recovering/Resolving]
  - Hypoaesthesia [Recovering/Resolving]
  - Chronic inflammatory demyelinating polyradiculoneuropathy [Recovered/Resolved]
  - Chronic inflammatory demyelinating polyradiculoneuropathy [Recovering/Resolving]
  - Burning sensation [Unknown]
  - Hypoaesthesia [Recovered/Resolved]
  - Hypoaesthesia [Recovering/Resolving]
  - Paraesthesia [Recovered/Resolved]
  - Burning sensation [Recovered/Resolved]
  - Paraesthesia [Recovering/Resolving]
  - Headache [Recovered/Resolved]
  - Headache [Recovered/Resolved]

NARRATIVE: CASE EVENT DATE: 20181126
